FAERS Safety Report 4585315-9 (Version None)
Quarter: 2005Q1

REPORT INFORMATION
  Report Type: 
  Country: None (occurrence: None)
  Receive Date: 20050214
  Receipt Date: 20050201
  Transmission Date: 20050727
  Serious: Yes (Death, Other)
  Sender: FDA-Public Use
  Company Number: 2004105307

PATIENT
  Age: 36 Year
  Sex: Female
  Weight: 52.61 kg

DRUGS (14)
  1. DELTASONE [Suspect]
     Indication: ILL-DEFINED DISORDER
     Dosage: (5 MG, 2 IN 1 D)
     Dates: start: 20020322, end: 20020410
  2. BOSENTAN (BOSENTAN) [Suspect]
     Indication: PULMONARY HYPERTENSION
     Dosage: 62.5 MG, IN 1 D)
     Dates: start: 20020322, end: 20020410
  3. ACETAMINOPHEN [Suspect]
     Indication: ILL-DEFINED DISORDER
     Dosage: 325 MEQ, 1 IN 1 D)
  4. MYCOPHENOLATE MOFETIL (MYCOPHENOLATE MOFETIL) [Suspect]
     Indication: ILL-DEFINED DISORDER
     Dosage: 500 MEQ, 2 IN 1 D
     Dates: start: 20030101
  5. CALCIUM CARBONATE [Concomitant]
  6. LANSOPRAZOLE [Concomitant]
  7. MULTIVITAMINS (ASCORBIC ACID) [Concomitant]
  8. NIFEDIPINE [Concomitant]
  9. WARFARIN SODIUM [Concomitant]
  10. ROFECOXIB [Concomitant]
  11. IBUPROFEN [Concomitant]
  12. PREDNISONE [Concomitant]
  13. WARFARIN [Concomitant]
  14. METOPROLOL SUCCINATE [Concomitant]

REACTIONS (14)
  - ABDOMINAL MASS [None]
  - ABSCESS [None]
  - ALANINE AMINOTRANSFERASE INCREASED [None]
  - ASPARTATE AMINOTRANSFERASE INCREASED [None]
  - CARDIAC ARREST [None]
  - CHEST PAIN [None]
  - CONDITION AGGRAVATED [None]
  - CONNECTIVE TISSUE DISORDER [None]
  - DIZZINESS [None]
  - GROIN INFECTION [None]
  - HAEMORRHAGIC OVARIAN CYST [None]
  - PULMONARY ARTERIAL PRESSURE INCREASED [None]
  - PULMONARY HYPERTENSION [None]
  - RESPIRATORY DISTRESS [None]
